FAERS Safety Report 17592867 (Version 3)
Quarter: 2020Q2

REPORT INFORMATION
  Report Type: Spontaneous
  Country: PH (occurrence: PH)
  Receive Date: 20200327
  Receipt Date: 20200413
  Transmission Date: 20200713
  Serious: Yes (Death, Hospitalization)
  Sender: FDA-Public Use
  Company Number: NVSC2020PH085618

PATIENT
  Sex: Female

DRUGS (6)
  1. VOTRIENT [Suspect]
     Active Substance: PAZOPANIB HYDROCHLORIDE
     Indication: RENAL CELL CARCINOMA
     Dosage: UNK
     Route: 065
  2. CALCI [Concomitant]
     Indication: PRODUCT USED FOR UNKNOWN INDICATION
     Dosage: 1 DF, BID (6 PM AFTER MEALS)
     Route: 065
  3. TWYNSTA [Concomitant]
     Active Substance: AMLODIPINE BESYLATE\TELMISARTAN
     Indication: PRODUCT USED FOR UNKNOWN INDICATION
     Dosage: 1 DF, QD, (6 PM AFTER DINNER)
     Route: 065
  4. VOTRIENT [Suspect]
     Active Substance: PAZOPANIB HYDROCHLORIDE
     Dosage: 200 MG, QD, ( STRENGTH 200 MG, 1TAB EACH, ONCE A DAY 2 HR AFTER DINNER)
     Route: 048
     Dates: start: 20191204
  5. NEUROBION [Concomitant]
     Active Substance: CYANOCOBALAMIN\PYRIDOXINE\THIAMINE
     Indication: PRODUCT USED FOR UNKNOWN INDICATION
     Dosage: 1 DF, QD (6 PM AFTER DINNER)
     Route: 065
  6. VOTRIENT [Suspect]
     Active Substance: PAZOPANIB HYDROCHLORIDE
     Dosage: 400 MG, QD, (1 TAB EACH ONCE A DAY, 2HR AFTER DINNER)
     Route: 048
     Dates: start: 20191023

REACTIONS (9)
  - Malignant neoplasm progression [Fatal]
  - Acute respiratory failure [Fatal]
  - Pneumonia [Fatal]
  - Renal cell carcinoma stage IV [Fatal]
  - Metastases to bone [Fatal]
  - Metastases to liver [Fatal]
  - Septic shock [Fatal]
  - Endometrial cancer [Fatal]
  - Metastases to central nervous system [Fatal]
